FAERS Safety Report 13883972 (Version 3)
Quarter: 2018Q1

REPORT INFORMATION
  Report Type: Spontaneous
  Country: DE (occurrence: DE)
  Receive Date: 20170820
  Receipt Date: 20180223
  Transmission Date: 20180508
  Serious: Yes (Life-Threatening, Hospitalization, Other)
  Sender: FDA-Public Use
  Company Number: PHHY2017DE121623

PATIENT
  Age: 68 Year
  Sex: Male
  Weight: 90 kg

DRUGS (12)
  1. TOREM [Concomitant]
     Active Substance: TORSEMIDE
     Indication: EJECTION FRACTION DECREASED
     Dosage: 1 DF, QD
     Route: 048
  2. ENTRESTO [Suspect]
     Active Substance: SACUBITRIL\VALSARTAN
     Indication: EJECTION FRACTION DECREASED
     Dosage: 100 MG, BID
     Route: 048
     Dates: start: 20170725, end: 20170808
  3. INSPRA [Concomitant]
     Active Substance: EPLERENONE
     Indication: EJECTION FRACTION DECREASED
     Dosage: 50 MG (1 DF), QD
     Route: 048
  4. BISOPROLOL [Concomitant]
     Active Substance: BISOPROLOL
     Indication: ISCHAEMIC CARDIOMYOPATHY
  5. XARELTO [Concomitant]
     Active Substance: RIVAROXABAN
     Indication: ATRIAL FIBRILLATION
     Dosage: 1 DF, QD
     Route: 048
  6. CORDAREX [Suspect]
     Active Substance: AMIODARONE
     Indication: VENTRICULAR TACHYCARDIA
     Dosage: 1 DF, QD
     Route: 048
     Dates: start: 20170725, end: 20170808
  7. FERRO SANOL [Concomitant]
     Active Substance: FERROUS GLYCINE SULFATE
     Indication: IRON DEFICIENCY
     Dosage: 1 DF, BID
     Route: 048
  8. ENTRESTO [Suspect]
     Active Substance: SACUBITRIL\VALSARTAN
     Indication: ISCHAEMIC CARDIOMYOPATHY
  9. BISOPROLOL [Concomitant]
     Active Substance: BISOPROLOL
     Indication: EJECTION FRACTION DECREASED
     Dosage: 1 DF, BID
     Route: 048
  10. TOREM [Concomitant]
     Active Substance: TORSEMIDE
     Indication: ISCHAEMIC CARDIOMYOPATHY
  11. AMARYL [Concomitant]
     Active Substance: GLIMEPIRIDE
     Indication: DIABETES MELLITUS
     Dosage: 1 DF, BID
     Route: 048
  12. INSPRA [Concomitant]
     Active Substance: EPLERENONE
     Indication: ISCHAEMIC CARDIOMYOPATHY

REACTIONS (18)
  - Nausea [Unknown]
  - Acute kidney injury [Recovering/Resolving]
  - Ventricular tachycardia [Recovered/Resolved]
  - Blood creatinine increased [Unknown]
  - Cardiac failure [Recovering/Resolving]
  - Hepatic failure [Recovering/Resolving]
  - Abdominal distension [Unknown]
  - Dizziness [Unknown]
  - Nasopharyngitis [Recovered/Resolved]
  - Enuresis [Recovered/Resolved]
  - Transaminases increased [Recovering/Resolving]
  - Fear [Recovered/Resolved]
  - Palpitations [Recovered/Resolved]
  - Dyspnoea exertional [Recovering/Resolving]
  - Oedema peripheral [Unknown]
  - Hepatic function abnormal [Recovering/Resolving]
  - Visual impairment [Unknown]
  - Dyspnoea [Recovered/Resolved]

NARRATIVE: CASE EVENT DATE: 2017
